FAERS Safety Report 17052205 (Version 1)
Quarter: 2019Q4

REPORT INFORMATION
  Report Type: Spontaneous
  Country: US (occurrence: US)
  Receive Date: 20191021
  Receipt Date: 20191021
  Transmission Date: 20200122
  Serious: Yes (Hospitalization)
  Sender: FDA-Public Use
  Company Number: None

PATIENT
  Age: 33 Year
  Sex: Male
  Weight: 117.3 kg

DRUGS (4)
  1. CISPLATIN. [Suspect]
     Active Substance: CISPLATIN
  2. IFOSFAMIDE. [Suspect]
     Active Substance: IFOSFAMIDE
  3. TAXOL [Suspect]
     Active Substance: PACLITAXEL
  4. NEULASTA [Suspect]
     Active Substance: PEGFILGRASTIM

REACTIONS (10)
  - Pyrexia [None]
  - Cellulitis [None]
  - Erythema [None]
  - Tenderness [None]
  - Oedema [None]
  - Febrile neutropenia [None]
  - Pulmonary mass [None]
  - Soft tissue disorder [None]
  - Swelling [None]
  - Soft tissue infection [None]

NARRATIVE: CASE EVENT DATE: 20190903
